FAERS Safety Report 8883279 (Version 3)
Quarter: 2014Q2

REPORT INFORMATION
  Report Type: Spontaneous
  Country: FI (occurrence: FI)
  Receive Date: 20121102
  Receipt Date: 20131018
  Transmission Date: 20141212
  Serious: Yes (Hospitalization, Other)
  Sender: FDA-Public Use
  Company Number: FI-PFIZER INC-2012271514

PATIENT
  Age: 28 Year
  Sex: Female

DRUGS (2)
  1. REVATIO [Suspect]
     Indication: PULMONARY HYPERTENSION
     Dosage: 20 MG
     Dates: start: 20121022, end: 2012
  2. REVATIO [Suspect]
     Dosage: 20 MG, 3X/DAY, EVERY EIGHT HOURS
     Dates: start: 20121023, end: 2012

REACTIONS (6)
  - Blood pressure decreased [Recovered/Resolved]
  - Heart rate decreased [Recovered/Resolved]
  - Somnolence [Recovered/Resolved]
  - Fall [Recovered/Resolved]
  - Dysphonia [Recovered/Resolved]
  - Hot flush [Recovered/Resolved]
